FAERS Safety Report 6290563-6 (Version None)
Quarter: 2009Q3

REPORT INFORMATION
  Report Type: 
  Country: None (occurrence: None)
  Receive Date: 20090730
  Receipt Date: 20090716
  Transmission Date: 20100115
  Serious: Yes (Other)
  Sender: FDA-Public Use
  Company Number: DE-ROCHE-645687

PATIENT
  Age: 48 Year
  Sex: Male

DRUGS (1)
  1. ROFERON-A [Suspect]
     Indication: MYCOSIS FUNGOIDES
     Route: 065
     Dates: start: 19970101

REACTIONS (1)
  - INFECTION [None]
